FAERS Safety Report 9003704 (Version 1)
Quarter: 2013Q1

REPORT INFORMATION
  Report Type: Spontaneous
  Country: US (occurrence: US)
  Receive Date: 20130108
  Receipt Date: 20130108
  Transmission Date: 20140127
  Serious: No
  Sender: FDA-Public Use
  Company Number: US-GLAXOSMITHKLINE-A0964021A

PATIENT
  Age: 64 Year
  Sex: Female

DRUGS (4)
  1. LOVAZA [Suspect]
     Indication: HYPERTENSION
     Dosage: 1CAP PER DAY
     Route: 048
     Dates: start: 20111213
  2. FISH OIL [Concomitant]
  3. CENTRUM [Concomitant]
  4. DIOVAN HCT [Concomitant]

REACTIONS (6)
  - Abdominal pain [Unknown]
  - Nausea [Unknown]
  - Abdominal discomfort [Unknown]
  - Pain in extremity [Unknown]
  - Blood pressure decreased [Unknown]
  - Eructation [Unknown]
